FAERS Safety Report 4694034-X (Version None)
Quarter: 2005Q2

REPORT INFORMATION
  Report Type: 
  Country: None (occurrence: None)
  Receive Date: 20050616
  Receipt Date: 20050603
  Transmission Date: 20051028
  Serious: Yes (Hospitalization, Other)
  Sender: FDA-Public Use
  Company Number: HQWYE333424MAR05

PATIENT
  Age: 60 Year
  Sex: Male
  Weight: 108.51 kg

DRUGS (4)
  1. RAPAMUNE [Suspect]
     Indication: PROPHYLAXIS AGAINST TRANSPLANT REJECTION
     Dosage: 5 MG 1X PER 1 DAY, ORAL
     Route: 048
     Dates: start: 20050311
  2. CORTICOSTEROIDS (CORTICOSTEROIDS, ) [Suspect]
     Indication: PROPHYLAXIS AGAINST TRANSPLANT REJECTION
     Dosage: 5 MG 1X PER 1 DAY, ORAL
     Route: 048
     Dates: start: 20050311
  3. TACROLIMUS (TACROLIMUS, ) [Suspect]
     Indication: PROPHYLAXIS AGAINST TRANSPLANT REJECTION
     Dosage: ORAL
     Route: 048
  4. ZENAPAX [Suspect]
     Dosage: ORAL
     Route: 048

REACTIONS (3)
  - ATRIAL FIBRILLATION [None]
  - HYPOTENSION [None]
  - POST PROCEDURAL COMPLICATION [None]
